FAERS Safety Report 16308685 (Version 1)
Quarter: 2019Q2

REPORT INFORMATION
  Report Type: Spontaneous
  Country: US (occurrence: US)
  Receive Date: 20190514
  Receipt Date: 20190514
  Transmission Date: 20190711
  Serious: Yes (Hospitalization)
  Sender: FDA-Public Use
  Company Number: US-FRESENIUS KABI-FK201905417

PATIENT
  Age: 80 Year
  Sex: Male

DRUGS (3)
  1. ACYCLOVIR SODIUM (MANUFACTURER UNKNOWN) [Suspect]
     Active Substance: ACYCLOVIR SODIUM
     Indication: HERPES ZOSTER
     Route: 042
  2. ACYCLOVIR SODIUM (MANUFACTURER UNKNOWN) [Suspect]
     Active Substance: ACYCLOVIR SODIUM
     Route: 048
  3. ACYCLOVIR SODIUM (MANUFACTURER UNKNOWN) [Suspect]
     Active Substance: ACYCLOVIR SODIUM
     Route: 042

REACTIONS (2)
  - Neurotoxicity [Recovered/Resolved]
  - Drug level increased [Recovered/Resolved]
